FAERS Safety Report 14026532 (Version 1)
Quarter: 2017Q3

REPORT INFORMATION
  Report Type: Spontaneous
  Country: TW (occurrence: TW)
  Receive Date: 20170929
  Receipt Date: 20170929
  Transmission Date: 20171128
  Serious: Yes (Hospitalization)
  Sender: FDA-Public Use
  Company Number: TW-APOTEX-2017AP019356

PATIENT
  Age: 43 Year
  Sex: Female

DRUGS (21)
  1. LITHIUM. [Suspect]
     Active Substance: LITHIUM
     Dosage: 50 MG, PER DAY
     Route: 065
     Dates: start: 20161018
  2. VALPROIC ACID. [Suspect]
     Active Substance: VALPROIC ACID
     Dosage: 750 MG, PER DAY
     Route: 065
     Dates: start: 201007
  3. LITHIUM. [Suspect]
     Active Substance: LITHIUM
     Dosage: 900 MG, PER DAY
     Route: 065
     Dates: start: 20160704
  4. LITHIUM. [Suspect]
     Active Substance: LITHIUM
     Dosage: 600 MG, PER DAY
     Route: 065
     Dates: start: 20170713
  5. VALPROIC ACID. [Suspect]
     Active Substance: VALPROIC ACID
     Indication: BIPOLAR I DISORDER
     Dosage: 900 MG, PER DAY
     Route: 065
     Dates: start: 2009
  6. VALPROIC ACID. [Suspect]
     Active Substance: VALPROIC ACID
     Dosage: 1000 MG, PER DAY
     Route: 065
     Dates: start: 201003
  7. ZOTEPINE [Suspect]
     Active Substance: ZOTEPINE
     Indication: BIPOLAR I DISORDER
     Dosage: 50 MG, PER DAY
     Route: 065
     Dates: start: 20160608
  8. LITHIUM. [Suspect]
     Active Substance: LITHIUM
     Indication: BIPOLAR I DISORDER
     Dosage: 900 MG, PER DAY
     Route: 065
     Dates: start: 2009
  9. RISPERIDONE. [Suspect]
     Active Substance: RISPERIDONE
     Indication: BIPOLAR I DISORDER
     Dosage: 4 MG, PER DAY
     Route: 065
     Dates: start: 2009
  10. RISPERIDONE. [Suspect]
     Active Substance: RISPERIDONE
     Dosage: 3 MG, PER DAY
     Route: 065
     Dates: start: 201007
  11. ZOTEPINE [Suspect]
     Active Substance: ZOTEPINE
     Dosage: 75 MG, PER DAY
     Route: 065
     Dates: start: 20160704
  12. RISPERIDONE. [Suspect]
     Active Substance: RISPERIDONE
     Dosage: 3 MG, PER DAY
     Route: 065
     Dates: start: 2013
  13. ZOTEPINE [Suspect]
     Active Substance: ZOTEPINE
     Dosage: 50 MG, PER DAY
     Route: 065
     Dates: start: 20160608
  14. LITHIUM. [Suspect]
     Active Substance: LITHIUM
     Dosage: 600 MG, PER DAY
     Route: 065
     Dates: start: 201003
  15. LITHIUM. [Suspect]
     Active Substance: LITHIUM
     Dosage: 600 MG, PER DAY
     Route: 065
     Dates: start: 2014
  16. LITHIUM. [Suspect]
     Active Substance: LITHIUM
     Dosage: 600 MG, DAY
     Route: 065
     Dates: start: 20161018
  17. VALPROIC ACID. [Suspect]
     Active Substance: VALPROIC ACID
     Dosage: 500 MG, PER DAY
     Route: 065
     Dates: start: 2013
  18. RISPERIDONE. [Suspect]
     Active Substance: RISPERIDONE
     Dosage: 3 MG, PER DAY
     Route: 065
     Dates: start: 201003
  19. ZOTEPINE [Suspect]
     Active Substance: ZOTEPINE
     Dosage: 100 MG, PER DAY
     Route: 065
     Dates: start: 20160705
  20. RISPERIDONE. [Suspect]
     Active Substance: RISPERIDONE
     Dosage: 3 MG, PER DAY
     Route: 065
     Dates: start: 2014
  21. DOGMATYL [Suspect]
     Active Substance: SULPIRIDE
     Indication: BIPOLAR I DISORDER
     Dosage: 200 MG, PER DAY
     Route: 065
     Dates: start: 20160525

REACTIONS (3)
  - Treatment noncompliance [Unknown]
  - Amenorrhoea [Recovered/Resolved]
  - Weight increased [Unknown]
